FAERS Safety Report 9832990 (Version 1)
Quarter: 2014Q1

REPORT INFORMATION
  Report Type: Spontaneous
  Country: DE (occurrence: DE)
  Receive Date: 20140121
  Receipt Date: 20140121
  Transmission Date: 20141002
  Serious: Yes (Hospitalization)
  Sender: FDA-Public Use
  Company Number: DE-B.I. PHARMACEUTICALS,INC./RIDGEFIELD-2014-BI-02319DE

PATIENT
  Age: 88 Year
  Sex: Female

DRUGS (5)
  1. PRADAXA [Suspect]
     Indication: ATRIAL FIBRILLATION
     Dosage: 220 MG
     Route: 048
     Dates: start: 20130715, end: 20131130
  2. VALSARTAN [Concomitant]
     Indication: HYPERTENSION
     Dosage: 320 MG
     Route: 048
     Dates: start: 20130715
  3. METOPROLOL SUCCINATE [Concomitant]
     Indication: CARDIAC FAILURE
     Dosage: 95 MG
     Route: 048
     Dates: start: 20130715
  4. SIMVASTATIN [Concomitant]
     Indication: HYPERLIPIDAEMIA
     Dosage: 20 MG
     Route: 048
     Dates: start: 20130715
  5. TORASEMID [Concomitant]
     Indication: CARDIAC FAILURE
     Route: 048
     Dates: start: 20130715

REACTIONS (1)
  - Femoral artery embolism [Unknown]
